FAERS Safety Report 6807326-2 (Version None)
Quarter: 2010Q2

REPORT INFORMATION
  Report Type: 
  Country: None (occurrence: None)
  Receive Date: 20100629
  Receipt Date: 20081015
  Transmission Date: 20101027
  Serious: Yes (Other)
  Sender: FDA-Public Use
  Company Number: US-PFIZER INC-2008062121

PATIENT
  Sex: Female
  Weight: 90 kg

DRUGS (5)
  1. ALPRAZOLAM [Suspect]
     Indication: ANXIETY
     Dates: start: 20080601
  2. LEXAPRO [Concomitant]
     Indication: DEPRESSION
  3. LAMICTAL [Concomitant]
     Indication: DEPRESSION
  4. CARDIZEM [Concomitant]
     Indication: CARDIAC DISORDER
  5. SYNTHROID [Concomitant]

REACTIONS (4)
  - BALANCE DISORDER [None]
  - CONFUSIONAL STATE [None]
  - DIZZINESS [None]
  - GAIT DISTURBANCE [None]
